FAERS Safety Report 5538353-3 (Version None)
Quarter: 2007Q4

REPORT INFORMATION
  Report Type: 
  Country: None (occurrence: None)
  Receive Date: 20071205
  Receipt Date: 20071121
  Transmission Date: 20080405
  Serious: Yes (Hospitalization)
  Sender: FDA-Public Use
  Company Number: MEDI-0006208

PATIENT
  Age: 7 Week
  Sex: Female
  Weight: 3.5 kg

DRUGS (5)
  1. SYNAGIS [Suspect]
     Dates: start: 20071025, end: 20071120
  2. SYNAGIS [Suspect]
     Dates: start: 20071025
  3. TEMPRA (PARACETAMOL) [Concomitant]
  4. PENTACEL (HAEMOPHILUS B CONJUGATE VACCINE, DIPHTHERIA, PERTUSSIS, TETA [Concomitant]
  5. PREVNAR (PNEUMOCOCCAL CONJUGATE VACCINE) [Concomitant]

REACTIONS (4)
  - ANAEMIA [None]
  - DEPRESSED LEVEL OF CONSCIOUSNESS [None]
  - LETHARGY [None]
  - REFLUX OESOPHAGITIS [None]
